FAERS Safety Report 25169103 (Version 1)
Quarter: 2025Q2

REPORT INFORMATION
  Report Type: Report from Study
  Country: UA (occurrence: UA)
  Receive Date: 20250407
  Receipt Date: 20250407
  Transmission Date: 20250717
  Serious: Yes (Death, Other)
  Sender: PFIZER
  Company Number: UA-TAKEDA-2024TUS092511

PATIENT
  Age: 69 Year
  Sex: Male

DRUGS (1)
  1. ADCETRIS [Suspect]
     Active Substance: BRENTUXIMAB VEDOTIN
     Indication: Hodgkin^s disease refractory
     Dosage: 351 MILLIGRAM, Q3WEEKS
     Route: 042
     Dates: start: 20240807

REACTIONS (5)
  - Death [Fatal]
  - Pneumonia [Unknown]
  - Body temperature increased [Unknown]
  - Toothache [Unknown]
  - Pyrexia [Unknown]

NARRATIVE: CASE EVENT DATE: 20250318
